FAERS Safety Report 19037319 (Version 1)
Quarter: 2021Q1

REPORT INFORMATION
  Report Type: Report from Study
  Country: US (occurrence: US)
  Receive Date: 20210322
  Receipt Date: 20210322
  Transmission Date: 20210420
  Serious: Yes (Other)
  Sender: FDA-Public Use
  Company Number: US-ROCHE-2788736

PATIENT
  Age: 45 Year
  Sex: Female
  Weight: 74.7 kg

DRUGS (4)
  1. TRASTUZUMAB. [Suspect]
     Active Substance: TRASTUZUMAB
     Indication: INVASIVE BREAST CARCINOMA
     Dosage: LAST ADMINISTERED DATE: 28?APR?2020
     Route: 042
     Dates: start: 20200204
  2. BLINDED ATEZOLIZUMAB [Suspect]
     Active Substance: ATEZOLIZUMAB
     Indication: INVASIVE BREAST CARCINOMA
     Dosage: LAST TREATMENT OF ATEZOLIZUMAB/PLACEBO RECEIVED ON 4/7/2020 OF 1200 MG.
     Route: 042
     Dates: start: 20200204, end: 20200407
  3. PERTUZUMAB. [Suspect]
     Active Substance: PERTUZUMAB
     Indication: INVASIVE BREAST CARCINOMA
     Dosage: LAST ADMINISTERED DATE: 28?APR?2020
     Route: 042
     Dates: start: 20200204
  4. PACLITAXEL. [Suspect]
     Active Substance: PACLITAXEL
     Indication: INVASIVE BREAST CARCINOMA
     Dosage: LAST ADMINISTERED DATE: 28?APR?2020
     Route: 042
     Dates: start: 20200204

REACTIONS (2)
  - Adrenal insufficiency [Recovered/Resolved]
  - Atrial thrombosis [Recovering/Resolving]

NARRATIVE: CASE EVENT DATE: 20200428
